FAERS Safety Report 16246109 (Version 1)
Quarter: 2019Q2

REPORT INFORMATION
  Report Type: Spontaneous
  Country: US (occurrence: US)
  Receive Date: 20190426
  Receipt Date: 20190426
  Transmission Date: 20190711
  Serious: Yes (Hospitalization)
  Sender: FDA-Public Use
  Company Number: US-AKCEA THERAPEUTICS-2019IS001514

PATIENT

DRUGS (1)
  1. TEGSEDI [Suspect]
     Active Substance: INOTERSEN SODIUM
     Indication: HEREDITARY NEUROPATHIC AMYLOIDOSIS
     Dosage: 284 MG/ 1.5 ML UNK
     Route: 058
     Dates: start: 201807

REACTIONS (9)
  - Knee arthroplasty [Unknown]
  - Fall [Unknown]
  - Head injury [Unknown]
  - Cholecystectomy [Unknown]
  - Injection site vesicles [Unknown]
  - Injection site pruritus [Unknown]
  - Weight decreased [Unknown]
  - Diarrhoea [Unknown]
  - Decreased appetite [Unknown]

NARRATIVE: CASE EVENT DATE: 20181120
